FAERS Safety Report 5388689-4 (Version None)
Quarter: 2007Q3

REPORT INFORMATION
  Report Type: 
  Country: None (occurrence: None)
  Receive Date: 20070712
  Receipt Date: 20070702
  Transmission Date: 20080115
  Serious: Yes (Other)
  Sender: FDA-Public Use
  Company Number: THQ2007A00574

PATIENT
  Age: 88 Year
  Sex: 0

DRUGS (1)
  1. HELICLEAR (LANSOPRAZOLE,CLARITHROMYCIN,AMOXICILLIN) [Suspect]

REACTIONS (3)
  - IMMUNE SYSTEM DISORDER [None]
  - NONSPECIFIC REACTION [None]
  - WEIGHT DECREASED [None]
